FAERS Safety Report 5527891-5 (Version None)
Quarter: 2007Q4

REPORT INFORMATION
  Report Type: 
  Country: None (occurrence: None)
  Receive Date: 20071126
  Receipt Date: 20071126
  Transmission Date: 20080405
  Serious: No
  Sender: FDA-Public Use
  Company Number: None

PATIENT
  Age: 55 Year
  Sex: Female
  Weight: 58.514 kg

DRUGS (1)
  1. INFLIXIMAB 100MG CENTOCOR [Suspect]
     Indication: RHEUMATOID ARTHRITIS
     Dosage: 400MG Q 8 WEEKS IV DRIP
     Route: 041
     Dates: start: 20071118, end: 20071121

REACTIONS (2)
  - BLOOD PRESSURE DECREASED [None]
  - INFUSION RELATED REACTION [None]
